FAERS Safety Report 9006435 (Version 1)
Quarter: 2013Q1

REPORT INFORMATION
  Report Type: Spontaneous
  Country: US (occurrence: US)
  Receive Date: 20130110
  Receipt Date: 20130110
  Transmission Date: 20140127
  Serious: No
  Sender: FDA-Public Use
  Company Number: US-PFIZER INC-2013011164

PATIENT
  Age: 74 Year
  Sex: Female

DRUGS (2)
  1. LYRICA [Suspect]
     Indication: POST HERPETIC NEURALGIA
     Dosage: 50 MG, 2X/DAY
  2. TYLENOL [Suspect]
     Dosage: UNK

REACTIONS (4)
  - Nervousness [Unknown]
  - Anxiety [Unknown]
  - Headache [Unknown]
  - Confusional state [Unknown]
